FAERS Safety Report 8781449 (Version 1)
Quarter: 2012Q4

REPORT INFORMATION
  Report Type: 
  Country: GB (occurrence: GB)
  Receive Date: 20120913
  Receipt Date: 20120913
  Transmission Date: 20130627
  Serious: Yes (Other)
  Sender: FDA-Public Use
  Company Number: PHFR2012GB004896

PATIENT
  Age: 64 Year
  Sex: Female

DRUGS (1)
  1. MIACALCIC [Suspect]
     Indication: OSTEOPOROSIS
     Dosage: UNK
     Route: 045

REACTIONS (1)
  - Breast cancer [Unknown]
